FAERS Safety Report 11108945 (Version 1)
Quarter: 2015Q2

REPORT INFORMATION
  Report Type: Not Available
  Country: US (occurrence: US)
  Receive Date: 20150513
  Receipt Date: 20150513
  Transmission Date: 20150821
  Serious: No
  Sender: FDA-Public Use
  Company Number: US-LUPIN PHARMACEUTICALS INC.-E2B_00003524

PATIENT
  Age: 71 Year
  Sex: Female

DRUGS (5)
  1. ZOVIRAX [Concomitant]
     Active Substance: ACYCLOVIR
     Indication: PRODUCT USED FOR UNKNOWN INDICATION
  2. DILTIAZEM [Concomitant]
     Active Substance: DILTIAZEM
     Indication: ATRIAL FIBRILLATION
  3. MAGNESIUM OXIDE. [Concomitant]
     Active Substance: MAGNESIUM OXIDE
     Indication: PRODUCT USED FOR UNKNOWN INDICATION
  4. KLOR-CON [Concomitant]
     Active Substance: POTASSIUM CHLORIDE
     Indication: ELECTROLYTE SUBSTITUTION THERAPY
  5. CEFDINIR CAPSULES USP 300 MG [Suspect]
     Active Substance: CEFDINIR
     Indication: PRODUCT USED FOR UNKNOWN INDICATION
     Dosage: 300MG
     Dates: start: 20150404

REACTIONS (3)
  - Diarrhoea [Recovering/Resolving]
  - Nausea [Recovering/Resolving]
  - Product odour abnormal [Unknown]

NARRATIVE: CASE EVENT DATE: 20150404
